FAERS Safety Report 7720211-7 (Version None)
Quarter: 2011Q3

REPORT INFORMATION
  Report Type: 
  Country: None (occurrence: None)
  Receive Date: 20110825
  Receipt Date: 20110324
  Transmission Date: 20111222
  Serious: Yes (Death, Hospitalization, Other)
  Sender: FDA-Public Use
  Company Number: 2128643-2011-00035

PATIENT
  Age: 75 Year
  Sex: Female

DRUGS (1)
  1. ALCOHOL PREP SWABS [Suspect]
     Dosage: AS NEEDED

REACTIONS (1)
  - INFECTION [None]
